FAERS Safety Report 10669928 (Version 1)
Quarter: 2014Q4

REPORT INFORMATION
  Report Type: Spontaneous
  Country: US (occurrence: US)
  Receive Date: 20141223
  Receipt Date: 20141223
  Transmission Date: 20150529
  Serious: Yes (Other)
  Sender: FDA-Public Use
  Company Number: US-BRISTOL-MYERS SQUIBB COMPANY-BMS-2014-001312

PATIENT
  Sex: Female
  Weight: 99.77 kg

DRUGS (1)
  1. BYETTA [Suspect]
     Active Substance: EXENATIDE
     Indication: PRODUCT USED FOR UNKNOWN INDICATION
     Dosage: 10 UNK, BID
     Route: 058

REACTIONS (4)
  - Nasopharyngitis [Unknown]
  - Hearing impaired [Unknown]
  - Breast cancer recurrent [Not Recovered/Not Resolved]
  - Sinus disorder [Unknown]
